FAERS Safety Report 20779289 (Version 1)
Quarter: 2022Q2

REPORT INFORMATION
  Report Type: Spontaneous
  Country: US (occurrence: US)
  Receive Date: 20220503
  Receipt Date: 20220503
  Transmission Date: 20220721
  Serious: Yes (Hospitalization)
  Sender: FDA-Public Use
  Company Number: US-NEUROCRINE BIOSCIENCES INC.-2022NBI02667

PATIENT

DRUGS (4)
  1. INGREZZA [Suspect]
     Active Substance: VALBENAZINE
     Indication: Tardive dyskinesia
     Dosage: 40 MILLIGRAM
     Route: 065
  2. LUVOX [Concomitant]
     Active Substance: FLUVOXAMINE MALEATE
     Dosage: 100 MILLIGRAM, QD
  3. LUVOX [Concomitant]
     Active Substance: FLUVOXAMINE MALEATE
     Dosage: 25 MILLIGRAM, QD
  4. CLOZARIL [Concomitant]
     Active Substance: CLOZAPINE
     Dosage: UNK

REACTIONS (5)
  - Psychiatric symptom [Unknown]
  - Drug interaction [Unknown]
  - Disorientation [Unknown]
  - Gait disturbance [Unknown]
  - Mouth swelling [Unknown]
